FAERS Safety Report 17642398 (Version 1)
Quarter: 2020Q2

REPORT INFORMATION
  Report Type: Spontaneous
  Country: US (occurrence: US)
  Receive Date: 20200408
  Receipt Date: 20200408
  Transmission Date: 20200713
  Serious: No
  Sender: FDA-Public Use
  Company Number: US-ALLERGAN-1922101US

PATIENT
  Age: 49 Year
  Sex: Female

DRUGS (4)
  1. UNPSECIFIED BLOOD PRESSURE MEDICATION [Concomitant]
     Indication: HYPERTENSION
     Dosage: UNK
     Route: 065
  2. UNPSECIFIED THYROID MEDICATION [Concomitant]
     Indication: THYROID DISORDER
     Dosage: UNK
     Route: 065
  3. LILETTA [Suspect]
     Active Substance: LEVONORGESTREL
     Indication: UTERINE HAEMORRHAGE
     Dosage: 52 MG, SINGLE
     Route: 015
     Dates: start: 20190402, end: 20190405
  4. ALBUTEROL. [Concomitant]
     Active Substance: ALBUTEROL
     Indication: ASTHMA
     Dosage: UNK
     Route: 055

REACTIONS (3)
  - Off label use [Unknown]
  - Device expulsion [Unknown]
  - Uterine haemorrhage [Not Recovered/Not Resolved]

NARRATIVE: CASE EVENT DATE: 20190402
